FAERS Safety Report 11662059 (Version 15)
Quarter: 2016Q1

REPORT INFORMATION
  Report Type: Spontaneous
  Country: US (occurrence: US)
  Receive Date: 20151026
  Receipt Date: 20160125
  Transmission Date: 20160525
  Serious: Yes (Death, Hospitalization, Other)
  Sender: FDA-Public Use
  Company Number: US-GLAXOSMITHKLINE-US2015GSK152614

PATIENT
  Age: 66 Year
  Sex: Male

DRUGS (6)
  1. FLOLAN [Suspect]
     Active Substance: EPOPROSTENOL SODIUM
     Dosage: 12 NG/KG/MIN CONTINUOUSLY; CONCENTRATION: 15,000NG/ML; PUMP RATE: 93ML/DAY: VIAL STRENGTH 1.5
     Route: 042
     Dates: start: 20151111
  2. FLOLAN [Suspect]
     Active Substance: EPOPROSTENOL SODIUM
     Indication: PULMONARY ARTERIAL HYPERTENSION
     Dosage: 7 NG/KG/MIN CONTINUOUSLY
     Route: 042
  3. FLOLAN [Suspect]
     Active Substance: EPOPROSTENOL SODIUM
     Dosage: UNK, CO
  4. ADCIRCA [Concomitant]
     Active Substance: TADALAFIL
  5. FLOLAN [Suspect]
     Active Substance: EPOPROSTENOL SODIUM
     Dosage: 12 NG/KG/MIN CONTINUOUSLY; CONCENTRATION: 15,000NG/ML; PUMP RATE: 93ML/DAY: VIAL STRENGTH 1.5
     Route: 042
     Dates: start: 20151111
  6. FLOLAN [Suspect]
     Active Substance: EPOPROSTENOL SODIUM
     Indication: PULMONARY ARTERIAL HYPERTENSION
     Dosage: 8 NG/KG/MIN CONTINUOUSLY
     Route: 042

REACTIONS (40)
  - Abdominal distension [Unknown]
  - Discomfort [Not Recovered/Not Resolved]
  - Diarrhoea [Recovering/Resolving]
  - Headache [Recovered/Resolved]
  - Heart rate increased [Unknown]
  - Abdominal discomfort [Unknown]
  - Hospitalisation [Unknown]
  - Intensive care [Unknown]
  - Death [Fatal]
  - Nausea [Recovering/Resolving]
  - Dizziness [Recovering/Resolving]
  - Oedema peripheral [Unknown]
  - Oxygen saturation decreased [Unknown]
  - Hypotension [Unknown]
  - Oedema [Not Recovered/Not Resolved]
  - Muscle spasms [Unknown]
  - Heart rate irregular [Unknown]
  - Fatigue [Unknown]
  - Rash [Unknown]
  - Drug therapy [Unknown]
  - Flatulence [Unknown]
  - Chills [Unknown]
  - Breath sounds abnormal [Unknown]
  - Flushing [Unknown]
  - Rales [Not Recovered/Not Resolved]
  - Pollakiuria [Unknown]
  - Syncope [Unknown]
  - Blood pressure abnormal [Unknown]
  - Weight increased [Unknown]
  - Blood pressure increased [Unknown]
  - Crepitations [Unknown]
  - Pulmonary arterial hypertension [Unknown]
  - Loss of consciousness [Unknown]
  - Cardiac disorder [Unknown]
  - Cough [Unknown]
  - Pyrexia [Unknown]
  - Fluid retention [Unknown]
  - Dyspnoea [Unknown]
  - Bilevel positive airway pressure [Unknown]
  - Heart rate abnormal [Unknown]

NARRATIVE: CASE EVENT DATE: 20151021
